FAERS Safety Report 11723419 (Version 4)
Quarter: 2017Q1

REPORT INFORMATION
  Report Type: Report from Study
  Country: CN (occurrence: CN)
  Receive Date: 20151111
  Receipt Date: 20170329
  Transmission Date: 20170428
  Serious: Yes (Other)
  Sender: FDA-Public Use
  Company Number: PHHY2015CN146090

PATIENT
  Age: 44 Year
  Sex: Male
  Weight: 65 kg

DRUGS (147)
  1. SODIUM CHLORIDE. [Concomitant]
     Active Substance: SODIUM CHLORIDE
     Indication: FLUID REPLACEMENT
     Dosage: 100 ML, PRN
     Route: 042
     Dates: start: 20151018, end: 20151018
  2. SODIUM CHLORIDE. [Concomitant]
     Active Substance: SODIUM CHLORIDE
     Dosage: 1500 ML, PRN
     Route: 042
     Dates: start: 20151018, end: 20151118
  3. CEPHAZOLINE SODIUM [Concomitant]
     Active Substance: CEFAZOLIN SODIUM
     Indication: SKIN TEST
     Dosage: 500 MG, PRN
     Route: 065
     Dates: start: 20151022, end: 20151026
  4. COMPOUND COENZYME [Concomitant]
     Dosage: 2 OT, QD
     Route: 042
     Dates: start: 20151019, end: 20151025
  5. COMPOUND GLUTAMINE GRANULES [Concomitant]
     Indication: PROPHYLAXIS
     Dosage: 67 MG, PRN
     Route: 048
     Dates: start: 20151020, end: 20151020
  6. DOXAZOSIN MESYLATE. [Concomitant]
     Active Substance: DOXAZOSIN MESYLATE
     Dosage: 4 MG, BID
     Route: 048
     Dates: start: 20151025, end: 20151113
  7. FRUSEMID//FUROSEMIDE [Concomitant]
     Dosage: 120 MG, PRN
     Route: 042
     Dates: start: 20151021, end: 20151021
  8. METOPROLOL TARTRATE. [Concomitant]
     Active Substance: METOPROLOL TARTRATE
     Dosage: 23.75 MG, PRN
     Route: 048
     Dates: start: 20151025, end: 20151025
  9. NITRENDIPINE [Concomitant]
     Active Substance: NITRENDIPINE
     Dosage: 10 MG, PRN
     Route: 048
     Dates: start: 20151019, end: 20151019
  10. NITRENDIPINE [Concomitant]
     Active Substance: NITRENDIPINE
     Dosage: 10 MG, PRN
     Route: 048
     Dates: start: 20151021, end: 20151021
  11. TELMISARTAN. [Concomitant]
     Active Substance: TELMISARTAN
     Indication: HYPERTENSION
     Dosage: 80 MG, PRN
     Route: 048
     Dates: start: 20151021, end: 20151021
  12. ORNIDAZOLE AND SODIUM CHLORIDE [Concomitant]
     Indication: INFLAMMATION
     Dosage: 100 UNK, UNK
     Route: 042
     Dates: start: 20151018, end: 20151019
  13. ALISTA//ALPROSTADIL [Concomitant]
     Indication: PROPHYLAXIS
     Dosage: 10 UG, QD
     Route: 042
     Dates: start: 20151020, end: 20151031
  14. METHYLPREDISOLONE [Concomitant]
     Active Substance: METHYLPREDNISOLONE
     Indication: TRANSPLANT REJECTION
     Dosage: 400 MG, QD
     Route: 065
     Dates: start: 20151021, end: 20151021
  15. MYCOPHENOLATE SODIUM [Concomitant]
     Active Substance: MYCOPHENOLATE SODIUM
     Indication: TRANSPLANT REJECTION
     Dosage: 1440 MG, QD
     Route: 065
     Dates: start: 20151019, end: 20151019
  16. 15-AMINO ACID [Concomitant]
     Dosage: 67 G, QD
     Route: 042
     Dates: start: 20151019, end: 20151025
  17. FELODIPIN [Concomitant]
     Active Substance: FELODIPINE
     Dosage: 1 OT, QD
     Route: 048
     Dates: start: 20151113
  18. MYFORTIC [Suspect]
     Active Substance: MYCOPHENOLATE SODIUM
     Indication: RENAL TRANSPLANT
     Dosage: 1440 MG, QD
     Route: 048
     Dates: start: 20151019
  19. PREDNISONE. [Suspect]
     Active Substance: PREDNISONE
     Indication: IMMUNOSUPPRESSANT DRUG THERAPY
     Dosage: 15 MG, QD
     Route: 048
     Dates: start: 20151110
  20. TACROLIMUS. [Suspect]
     Active Substance: TACROLIMUS
     Dosage: 5.5 MG, QD
     Route: 048
     Dates: start: 20151026, end: 20151103
  21. TACROLIMUS. [Suspect]
     Active Substance: TACROLIMUS
     Dosage: 5 MG, QD
     Route: 048
     Dates: start: 20151104, end: 20151105
  22. MUCOSOLVAN [Concomitant]
     Active Substance: AMBROXOL HYDROCHLORIDE
     Indication: PROPHYLAXIS
     Dosage: 30 MG, TID
     Route: 042
     Dates: start: 20151019, end: 20151104
  23. SODIUM CHLORIDE. [Concomitant]
     Active Substance: SODIUM CHLORIDE
     Dosage: 100 ML, PRN
     Route: 042
     Dates: start: 20151019, end: 20151019
  24. BETALOC [Concomitant]
     Active Substance: METOPROLOL TARTRATE
     Indication: PRODUCT USED FOR UNKNOWN INDICATION
     Dosage: 23.75 MG, QD
     Route: 048
  25. BUDESONIDE. [Concomitant]
     Active Substance: BUDESONIDE
     Indication: PRODUCTIVE COUGH
     Dosage: 1 OT, TID
     Route: 055
     Dates: start: 20151019, end: 20151104
  26. COMPOUND IPRATROPIUM BROMIDE [Concomitant]
     Indication: PRODUCTIVE COUGH
     Dosage: 1 OT, TID
     Route: 055
     Dates: start: 20151019, end: 20151104
  27. CREATINE PHOSPHATE SODIUM [Concomitant]
     Active Substance: CREATINE
     Indication: PROPHYLAXIS
     Dosage: 2 G, QD
     Route: 042
     Dates: start: 20151022, end: 20151027
  28. DOPAMINE HYDROCHLORIDE. [Concomitant]
     Active Substance: DOPAMINE HYDROCHLORIDE
     Indication: HYPERTENSION
     Dosage: 180 MG, PRN
     Route: 042
     Dates: start: 20151020, end: 20151020
  29. FRUSEMID//FUROSEMIDE [Concomitant]
     Indication: POLYURIA
     Dosage: 20 MG, PRN
     Route: 042
     Dates: start: 20151120, end: 20151120
  30. FRUSEMID//FUROSEMIDE [Concomitant]
     Dosage: 160 MG, PRN
     Route: 042
     Dates: start: 20151019, end: 20151019
  31. FRUSEMID//FUROSEMIDE [Concomitant]
     Dosage: 160 MG, PRN
     Route: 042
     Dates: start: 20151020, end: 20151020
  32. FRUSEMID//FUROSEMIDE [Concomitant]
     Dosage: 40 MG, PRN
     Route: 042
     Dates: start: 20151026, end: 20151027
  33. NIFEDIPINE. [Concomitant]
     Active Substance: NIFEDIPINE
     Dosage: 30 MG, PRN
     Route: 048
     Dates: start: 20151022, end: 20151022
  34. TELMISARTAN. [Concomitant]
     Active Substance: TELMISARTAN
     Dosage: 80 MG, BID
     Route: 048
     Dates: start: 20151019, end: 20151019
  35. TELMISARTAN. [Concomitant]
     Active Substance: TELMISARTAN
     Dosage: 80 MG, PRN
     Route: 048
     Dates: start: 20151023, end: 20151023
  36. CETIRIZINE [Concomitant]
     Active Substance: CETIRIZINE HYDROCHLORIDE
     Dosage: 10 MG, PRN
     Route: 048
     Dates: start: 20151102, end: 20151102
  37. PROMETHAZINE/PROMETHAZINE/HYDROCHLORIDE [Concomitant]
     Indication: HYPERSENSITIVITY
     Dosage: 25 MG, PRN
     Route: 030
     Dates: start: 20151026, end: 20151026
  38. MYFORTIC [Suspect]
     Active Substance: MYCOPHENOLATE SODIUM
     Dosage: 720 MG, QD
     Route: 048
     Dates: start: 20151109, end: 20151110
  39. MYFORTIC [Suspect]
     Active Substance: MYCOPHENOLATE SODIUM
     Dosage: 900 MG, QD
     Route: 048
     Dates: start: 20151111
  40. TACROLIMUS. [Suspect]
     Active Substance: TACROLIMUS
     Indication: IMMUNOSUPPRESSANT DRUG THERAPY
     Dosage: 4.5 MG, QD
     Route: 048
     Dates: start: 20151021, end: 20151025
  41. TACROLIMUS. [Suspect]
     Active Substance: TACROLIMUS
     Dosage: 4 MG, QD
     Route: 048
     Dates: start: 20151109, end: 20151110
  42. MEROPENEM. [Concomitant]
     Active Substance: MEROPENEM
     Indication: INFLAMMATION
     Dosage: 500 MG, BID
     Route: 042
     Dates: start: 20151018, end: 20151018
  43. IRON SUCROSE [Concomitant]
     Active Substance: IRON SUCROSE
     Indication: MINERAL SUPPLEMENTATION
     Dosage: 1 OT (VIAL), QD
     Route: 042
     Dates: start: 20151020, end: 20151020
  44. CARBOHYDRATES NOS W/ELECTROLYTES NOS [Concomitant]
     Indication: ELECTROLYTE SUBSTITUTION THERAPY
     Dosage: 500 ML, PRN
     Route: 042
     Dates: start: 20151011, end: 20151018
  45. CEFOTIAM [Concomitant]
     Active Substance: CEFOTIAM
     Indication: ANTI-INFECTIVE THERAPY
     Dosage: 2000 MG, BID
     Route: 042
  46. CREATINE PHOSPHATE SODIUM [Concomitant]
     Active Substance: CREATINE
     Dosage: 2 DF, PRN
     Route: 042
     Dates: start: 20151022, end: 20151022
  47. DICLOFENAC SODIUM W/LIDOCAINE HYDROCHLORIDE [Concomitant]
     Dosage: 1 OT, QD
     Route: 030
     Dates: start: 20151022, end: 20151022
  48. DOXAZOSIN MESYLATE. [Concomitant]
     Active Substance: DOXAZOSIN MESYLATE
     Indication: HYPERTENSION
     Dosage: 4 MG, PRN
     Route: 048
     Dates: start: 20151025, end: 20151025
  49. LOW MOLECULE HEPARIN CALCIUM [Concomitant]
     Indication: COAGULOPATHY
     Dosage: 0.2 ML, PRN
     Route: 065
     Dates: start: 20151026, end: 20151026
  50. METOPROLOL TARTRATE. [Concomitant]
     Active Substance: METOPROLOL TARTRATE
     Dosage: 25 MG, PRN
     Route: 048
     Dates: start: 20151021, end: 20151021
  51. METOPROLOL TARTRATE. [Concomitant]
     Active Substance: METOPROLOL TARTRATE
     Dosage: 25 MG, PRN
     Route: 048
     Dates: start: 20151023, end: 20151023
  52. MICARDIS [Concomitant]
     Active Substance: TELMISARTAN
     Indication: HYPERTENSION
     Dosage: 80 MG, BID
     Route: 048
     Dates: start: 20151023, end: 20151114
  53. NIFEDIPINE. [Concomitant]
     Active Substance: NIFEDIPINE
     Dosage: 30 MG, PRN
     Route: 048
     Dates: start: 20151021, end: 20151021
  54. NITRENDIPINE [Concomitant]
     Active Substance: NITRENDIPINE
     Dosage: 10 MG, QD
     Route: 048
     Dates: start: 20151023, end: 20151025
  55. TELMISARTAN. [Concomitant]
     Active Substance: TELMISARTAN
     Dosage: 80 MG, PRN
     Route: 048
     Dates: start: 20151019, end: 20151019
  56. PANTOPRAZOLE [Concomitant]
     Active Substance: PANTOPRAZOLE SODIUM
     Dosage: 40 MG, QD
     Route: 048
     Dates: start: 20151113
  57. ALISTA//ALPROSTADIL [Concomitant]
     Dosage: 10 UG, QD
     Route: 042
     Dates: start: 20151102, end: 20151114
  58. MYCOPHENOLATE SODIUM [Concomitant]
     Active Substance: MYCOPHENOLATE SODIUM
     Dosage: 1080 MG, QD
     Route: 065
     Dates: start: 20151020, end: 20151110
  59. CETIRIZINE [Concomitant]
     Active Substance: CETIRIZINE HYDROCHLORIDE
     Indication: HYPERSENSITIVITY
     Dosage: 10 MG, PRN
     Route: 048
     Dates: start: 20151026, end: 20151026
  60. FELODIPIN [Concomitant]
     Active Substance: FELODIPINE
     Indication: HYPERTENSION
     Dosage: 5 MG, BID
     Route: 048
     Dates: start: 20151023, end: 20151114
  61. HUMAN ALBUMIN [Concomitant]
     Active Substance: ALBUMIN HUMAN
     Indication: SUPPLEMENTATION THERAPY
     Dosage: 10 G, PRN
     Dates: start: 20151018, end: 20151018
  62. HUMAN ALBUMIN [Concomitant]
     Active Substance: ALBUMIN HUMAN
     Dosage: 20 G, PRN
     Route: 042
     Dates: start: 20151020, end: 20151020
  63. PROMETHAZINE/PROMETHAZINE/HYDROCHLORIDE [Concomitant]
     Dosage: 25 MG, PRN
     Route: 030
     Dates: start: 20151102, end: 20151102
  64. TACROLIMUS. [Suspect]
     Active Substance: TACROLIMUS
     Indication: RENAL TRANSPLANT
     Dosage: 6.5 MG, QD
     Route: 048
     Dates: start: 20151019, end: 20151020
  65. CARBOHYDRATES NOS W/ELECTROLYTES NOS [Concomitant]
     Dosage: 500 ML, PRN
     Route: 042
     Dates: start: 20151019, end: 20151019
  66. DICLOFENAC SODIUM W/LIDOCAINE HYDROCHLORIDE [Concomitant]
     Dosage: 1 OT, QD
     Route: 030
     Dates: start: 20151022, end: 20151026
  67. DOXOFYLLINE [Concomitant]
     Active Substance: DOXOFYLLINE
     Indication: WHEEZING
     Dosage: 200 MG, QD
     Route: 042
     Dates: start: 20151018, end: 20151019
  68. FRUSEMID//FUROSEMIDE [Concomitant]
     Dosage: 240 MG, PRN
     Route: 042
     Dates: start: 20151029, end: 20151029
  69. METOPROLOL TARTRATE. [Concomitant]
     Active Substance: METOPROLOL TARTRATE
     Indication: HYPERTENSION
     Dosage: 25 MG, PRN
     Route: 048
     Dates: start: 20151019, end: 20151019
  70. MUCOPOLYSACCHARIDE [Concomitant]
     Indication: PHLEBITIS
     Dosage: 14 G, PRN
     Route: 065
     Dates: start: 20151108, end: 20151108
  71. NIFEDIPINE. [Concomitant]
     Active Substance: NIFEDIPINE
     Dosage: 30 MG, PRN
     Route: 048
     Dates: start: 20151019, end: 20151019
  72. NITRENDIPINE [Concomitant]
     Active Substance: NITRENDIPINE
     Dosage: 10 MG, PRN
     Route: 048
     Dates: start: 20151024, end: 20151024
  73. PHENOBARBITAL. [Concomitant]
     Active Substance: PHENOBARBITAL
     Indication: SEDATION
     Dosage: 100 MG, PRN
     Route: 030
     Dates: start: 20151018, end: 20151018
  74. POLYENE PHOSPHATIDYLCHOLINE [Concomitant]
     Active Substance: PHOSPHOLIPID
     Indication: PROPHYLAXIS
     Dosage: 228 MG, TID
     Route: 048
     Dates: start: 20151113
  75. POTASSIUM CHLORIDE. [Concomitant]
     Active Substance: POTASSIUM CHLORIDE
     Indication: MINERAL SUPPLEMENTATION
     Dosage: 1000 MG, TID
     Route: 048
     Dates: start: 20151021, end: 20151026
  76. TRIMETAZIDINE DIHYDROCHLORIDE [Concomitant]
     Active Substance: TRIMETAZIDINE DIHYDROCHLORIDE
     Indication: PROPHYLAXIS
     Dosage: 20 MG, TID
     Route: 048
     Dates: start: 20151021, end: 20151114
  77. VANCOMYCIN HYDROCHLORIDE. [Concomitant]
     Active Substance: VANCOMYCIN HYDROCHLORIDE
     Indication: INFLAMMATION
     Dosage: 500 MG, BID
     Route: 042
     Dates: start: 20151026, end: 20151102
  78. PROMETHAZINE/PROMETHAZINE/HYDROCHLORIDE [Concomitant]
     Dosage: 25 MG, PRN
     Route: 030
     Dates: start: 20151109, end: 20151109
  79. METHYLPREDNISOLONE. [Suspect]
     Active Substance: METHYLPREDNISOLONE
     Indication: RENAL TRANSPLANT
     Dosage: 500 MG, UNK
     Route: 042
     Dates: start: 20151018, end: 20151020
  80. MEROPENEM. [Concomitant]
     Active Substance: MEROPENEM
     Indication: PROPHYLAXIS
     Dosage: 500 MG, TID
     Route: 042
     Dates: start: 20151019, end: 20151026
  81. SODIUM CHLORIDE. [Concomitant]
     Active Substance: SODIUM CHLORIDE
     Dosage: 100 ML, PRN
     Route: 042
     Dates: start: 20151020, end: 20151021
  82. CARBOHYDRATES NOS W/ELECTROLYTES NOS [Concomitant]
     Dosage: 500 ML, QD
     Route: 042
     Dates: start: 20151019, end: 20151025
  83. COMPOUND LIQUORICE [Concomitant]
     Indication: COUGH
     Dosage: 10 ML, TID
     Route: 048
     Dates: start: 20151029, end: 20151029
  84. DICLOFENAC SODIUM W/LIDOCAINE HYDROCHLORIDE [Concomitant]
     Indication: ANALGESIC THERAPY
     Dosage: 1 OT, PRN
     Route: 030
     Dates: start: 20151018, end: 20151018
  85. FRUSEMID//FUROSEMIDE [Concomitant]
     Dosage: 120 MG, PRN
     Route: 048
     Dates: start: 20151018, end: 20151018
  86. L-GLUTAMINE//GLUTAMIC ACID [Concomitant]
     Dosage: 670 MG, TID
     Route: 042
     Dates: start: 20151029, end: 20151029
  87. NITRENDIPINE [Concomitant]
     Active Substance: NITRENDIPINE
     Dosage: 20 MG, PRN
     Route: 048
     Dates: start: 20151018, end: 20151018
  88. OMEPRAZOL//OMEPRAZOLE [Concomitant]
     Active Substance: OMEPRAZOLE
     Dosage: 40 MG, QD
     Route: 042
     Dates: start: 20151019, end: 20151020
  89. ORNIDAZOLE AND SODIUM CHLORIDE [Concomitant]
     Dosage: 100 ML, PRN
     Route: 048
     Dates: start: 20151018, end: 20151018
  90. ORNIDAZOLE AND SODIUM CHLORIDE [Concomitant]
     Dosage: 500 MG, BID
     Route: 042
     Dates: start: 20151019, end: 20151019
  91. POTASSIUM CHLORIDE. [Concomitant]
     Active Substance: POTASSIUM CHLORIDE
     Dosage: 1000 MG, TID
     Route: 048
     Dates: start: 20151030, end: 20151103
  92. TRIMETAZIDINE DIHYDROCHLORIDE [Concomitant]
     Active Substance: TRIMETAZIDINE DIHYDROCHLORIDE
     Dosage: 20 MG, TID
     Route: 048
     Dates: start: 20151021, end: 20151114
  93. 15-AMINO ACID [Concomitant]
     Indication: SUPPLEMENTATION THERAPY
     Dosage: 67 G, QD
     Route: 042
     Dates: start: 20151018, end: 20151018
  94. 15-AMINO ACID [Concomitant]
     Indication: NUTRITIONAL SUPPLEMENTATION
     Dosage: 67 G, PRN
     Route: 042
     Dates: start: 20151019, end: 20151019
  95. HUMAN ALBUMIN [Concomitant]
     Active Substance: ALBUMIN HUMAN
     Dosage: 20 G, PRN
     Route: 042
     Dates: start: 20151019, end: 20151019
  96. MEROPENEM. [Concomitant]
     Active Substance: MEROPENEM
     Dosage: 500 MG, PRN
     Route: 042
     Dates: start: 20151018, end: 20151018
  97. CEFOTIAM [Concomitant]
     Active Substance: CEFOTIAM
     Indication: INFLAMMATION
  98. COMPOUND COENZYME [Concomitant]
     Dosage: 2 OT, PRN
     Route: 042
     Dates: start: 20151019, end: 20151019
  99. DICLOFENAC SODIUM W/LIDOCAINE HYDROCHLORIDE [Concomitant]
     Dosage: 1 OT, QD
     Route: 042
     Dates: start: 20151022, end: 20151022
  100. DILTIAZEM HYDROCHLORIDE. [Concomitant]
     Active Substance: DILTIAZEM HYDROCHLORIDE
     Indication: PRODUCT USED FOR UNKNOWN INDICATION
     Dosage: 30 MG, BID
     Route: 048
     Dates: start: 20151019, end: 20151028
  101. DOPAMINE HYDROCHLORIDE. [Concomitant]
     Active Substance: DOPAMINE HYDROCHLORIDE
     Dosage: 240 MG, PRN
     Route: 042
     Dates: start: 20151019, end: 20151019
  102. DOXOFYLLINE [Concomitant]
     Active Substance: DOXOFYLLINE
     Dosage: 200 MG, QD
     Route: 042
     Dates: start: 20151104, end: 20151107
  103. LEVOCARNITINE. [Concomitant]
     Active Substance: LEVOCARNITINE
     Indication: PRODUCT USED FOR UNKNOWN INDICATION
     Dosage: 2 OT, PRN
     Route: 042
     Dates: start: 20151022, end: 20151022
  104. LEVOCARNITINE. [Concomitant]
     Active Substance: LEVOCARNITINE
     Dosage: 2 OT, PRN
     Route: 042
     Dates: start: 20151027, end: 20151027
  105. LOW MOLECULE HEPARIN [Concomitant]
     Indication: COAGULOPATHY
     Dosage: 2500 IU, PRN
     Route: 065
     Dates: start: 20151109, end: 20151109
  106. NIFEDIPINE. [Concomitant]
     Active Substance: NIFEDIPINE
     Indication: HYPERTENSION
     Dosage: 30 MG, BID
     Route: 048
     Dates: start: 20151019, end: 20151019
  107. NIFEDIPINE. [Concomitant]
     Active Substance: NIFEDIPINE
     Dosage: 30 MG, PRN
     Dates: start: 20151018, end: 20151018
  108. NIFEDIPINE. [Concomitant]
     Active Substance: NIFEDIPINE
     Dosage: 30 MG, PRN
     Route: 042
     Dates: start: 20151023, end: 20151023
  109. OMEPRAZOL//OMEPRAZOLE [Concomitant]
     Active Substance: OMEPRAZOLE
     Indication: PROPHYLAXIS
     Dosage: 40 MG, BID
     Route: 042
     Dates: start: 20151020, end: 20151103
  110. MYFORTIC [Suspect]
     Active Substance: MYCOPHENOLATE SODIUM
     Indication: PROPHYLAXIS AGAINST TRANSPLANT REJECTION
     Dosage: 1080 MG, QD
     Route: 048
     Dates: start: 20151020, end: 20151110
  111. PREDNISONE. [Suspect]
     Active Substance: PREDNISONE
     Indication: RENAL TRANSPLANT
     Dosage: 20 MG, QD
     Route: 048
     Dates: start: 20151021, end: 20151109
  112. TACROLIMUS. [Suspect]
     Active Substance: TACROLIMUS
     Dosage: 4.5 MG, QD
     Route: 048
     Dates: start: 20151106, end: 20151108
  113. TACROLIMUS. [Suspect]
     Active Substance: TACROLIMUS
     Dosage: 4.5 MG, QD
     Route: 048
     Dates: start: 20151111
  114. DICLOFENAC SODIUM W/LIDOCAINE HYDROCHLORIDE [Concomitant]
     Indication: ANALGESIC THERAPY
     Dosage: 1 OT (VIAL), QD
     Route: 030
     Dates: start: 20151022
  115. MUCOSOLVAN [Concomitant]
     Active Substance: AMBROXOL HYDROCHLORIDE
     Indication: SPUTUM RETENTION
  116. SODIUM CHLORIDE. [Concomitant]
     Active Substance: SODIUM CHLORIDE
     Dosage: 100 ML, PRN
     Route: 042
     Dates: start: 20151120, end: 20151120
  117. SODIUM CHLORIDE. [Concomitant]
     Active Substance: SODIUM CHLORIDE
     Dosage: 100 ML, PRN
     Route: 042
     Dates: start: 20151109, end: 20151109
  118. SODIUM CHLORIDE. [Concomitant]
     Active Substance: SODIUM CHLORIDE
     Dosage: 1500 ML, PRN
     Route: 042
     Dates: start: 20151020, end: 20151020
  119. COMPOUND COENZYME [Concomitant]
     Indication: SUPPLEMENTATION THERAPY
     Dosage: 2 OT, QD
     Route: 042
     Dates: start: 20151018, end: 20151018
  120. DICLOFENAC SODIUM W/LIDOCAINE HYDROCHLORIDE [Concomitant]
     Indication: SEIZURE
     Dosage: 1 OT, PRN
     Route: 030
     Dates: start: 20151019, end: 20151019
  121. FRUSEMID//FUROSEMIDE [Concomitant]
     Dosage: 40 MG, QD
     Route: 042
     Dates: start: 20151031, end: 20151110
  122. TELMISARTAN. [Concomitant]
     Active Substance: TELMISARTAN
     Dosage: 80 MG, QD
     Route: 048
     Dates: start: 20151113
  123. ORNIDAZOLE AND SODIUM CHLORIDE [Concomitant]
     Indication: ANTI-INFECTIVE THERAPY
     Dosage: 100 ML, BID
     Route: 042
     Dates: start: 20151019, end: 20151020
  124. PANTOPRAZOLE [Concomitant]
     Active Substance: PANTOPRAZOLE SODIUM
     Indication: PROPHYLAXIS
     Dosage: 40 MG, QD
     Route: 048
     Dates: start: 20151103, end: 20151104
  125. ALISTA//ALPROSTADIL [Concomitant]
     Dosage: 10 UG, QD
     Route: 042
     Dates: start: 20151002, end: 20151002
  126. VANCOMYCIN HYDROCHLORIDE. [Concomitant]
     Active Substance: VANCOMYCIN HYDROCHLORIDE
     Dosage: 500 MG, QD
     Route: 042
     Dates: start: 20151021, end: 20151101
  127. METHYLPREDISOLONE [Concomitant]
     Active Substance: METHYLPREDNISOLONE
     Dosage: 500 MG, QD
     Route: 065
     Dates: start: 20151018, end: 20151020
  128. MYCOPHENOLATE SODIUM [Concomitant]
     Active Substance: MYCOPHENOLATE SODIUM
     Dosage: 720 MG, QD
     Route: 065
     Dates: start: 20151109, end: 20151110
  129. CETIRIZINE [Concomitant]
     Active Substance: CETIRIZINE HYDROCHLORIDE
     Dosage: 10 MG, PRN
     Route: 048
     Dates: start: 20151109, end: 20151109
  130. AMBROXAN//AMBROXOL HYDROCHLORIDE [Concomitant]
     Indication: PRODUCTIVE COUGH
     Dosage: 15 MG, TID
     Route: 055
     Dates: start: 20151019, end: 20151104
  131. BASILIXIMAB [Suspect]
     Active Substance: BASILIXIMAB
     Indication: RENAL TRANSPLANT
     Dosage: 20 MG, QD
     Route: 065
     Dates: start: 20151018, end: 20151018
  132. BASILIXIMAB [Suspect]
     Active Substance: BASILIXIMAB
     Dosage: 20 MG, QD
     Route: 065
     Dates: start: 20151022, end: 20151022
  133. METHYLPREDNISOLONE. [Suspect]
     Active Substance: METHYLPREDNISOLONE
     Indication: IMMUNOSUPPRESSANT DRUG THERAPY
     Dosage: 400 MG, UNK
     Route: 042
     Dates: start: 20151021, end: 20151021
  134. MEROPENEM. [Concomitant]
     Active Substance: MEROPENEM
     Dosage: 500 MG, PRN
     Route: 042
     Dates: start: 20151019, end: 20151019
  135. IRON SUCROSE [Concomitant]
     Active Substance: IRON SUCROSE
     Dosage: 1 OT, PRN
     Route: 042
     Dates: start: 20151020, end: 20151114
  136. SODIUM CHLORIDE. [Concomitant]
     Active Substance: SODIUM CHLORIDE
     Indication: DEVICE ISSUE
     Dosage: 100 ML, QD
     Route: 042
     Dates: start: 20151019, end: 20151030
  137. MAGNESIUM [Concomitant]
     Active Substance: MAGNESIUM
     Indication: OEDEMA
     Dosage: 100 ML, PRN
     Route: 065
     Dates: start: 20151108, end: 20151108
  138. DICLOFENAC SODIUM W/LIDOCAINE HYDROCHLORIDE [Concomitant]
     Dosage: 1 OT, PRN
     Dates: start: 20151021, end: 20151021
  139. DOXOFYLLINE [Concomitant]
     Active Substance: DOXOFYLLINE
     Indication: COUGH
     Dosage: 200 MG, BID
     Route: 042
     Dates: start: 20151019, end: 20151104
  140. FRUSEMID//FUROSEMIDE [Concomitant]
     Dosage: 80 MG, QD
     Route: 042
     Dates: start: 20151023, end: 20151028
  141. L-GLUTAMINE//GLUTAMIC ACID [Concomitant]
     Indication: PROPHYLAXIS
     Dosage: 1340 MG, PRN
     Route: 048
     Dates: start: 20151019, end: 20151019
  142. MAGNESIUM SULPHATE [Concomitant]
     Active Substance: MAGNESIUM SULFATE
     Indication: PRODUCT USED FOR UNKNOWN INDICATION
     Dosage: 1000 ML, PRN
     Route: 065
     Dates: start: 20151018, end: 20151018
  143. NITRENDIPINE [Concomitant]
     Active Substance: NITRENDIPINE
     Indication: HYPERTENSION
     Dosage: 10 MG, TID
     Route: 048
     Dates: start: 20151026, end: 20151106
  144. OMEPRAZOL//OMEPRAZOLE [Concomitant]
     Active Substance: OMEPRAZOLE
     Dosage: 40 MG, PRN
     Route: 042
     Dates: start: 20151019, end: 20151019
  145. VANCOMYCIN HYDROCHLORIDE. [Concomitant]
     Active Substance: VANCOMYCIN HYDROCHLORIDE
     Indication: INFECTION
     Dosage: 500 MG, QD
     Route: 042
     Dates: start: 20151026, end: 20151027
  146. MYCOPHENOLATE SODIUM [Concomitant]
     Active Substance: MYCOPHENOLATE SODIUM
     Dosage: 900 MG, QD
     Route: 065
     Dates: start: 20151111
  147. SCOPOLAMIN [Concomitant]
     Active Substance: SCOPOLAMINE
     Indication: PRODUCT USED FOR UNKNOWN INDICATION
     Dosage: 300 UG, PRN
     Route: 030
     Dates: start: 20151018, end: 20151018

REACTIONS (10)
  - Red blood cells urine [Recovering/Resolving]
  - Neutrophil count increased [Recovering/Resolving]
  - Lymphocyte count decreased [Recovering/Resolving]
  - Blood urea increased [Recovering/Resolving]
  - Nasopharyngitis [Recovering/Resolving]
  - Upper respiratory tract infection [Recovering/Resolving]
  - White blood cell count increased [Recovering/Resolving]
  - Pyrexia [Recovering/Resolving]
  - Haemoglobin decreased [Recovering/Resolving]
  - Incision site pain [Recovering/Resolving]

NARRATIVE: CASE EVENT DATE: 20151019
